FAERS Safety Report 25351423 (Version 1)
Quarter: 2025Q2

REPORT INFORMATION
  Report Type: Spontaneous
  Country: US (occurrence: US)
  Receive Date: 20250523
  Receipt Date: 20250523
  Transmission Date: 20250716
  Serious: No
  Sender: HIKMA
  Company Number: US-HIKMA PHARMACEUTICALS USA INC.-US-H14001-24-05441

PATIENT
  Age: 7 Year
  Sex: Male

DRUGS (2)
  1. FLUTICASONE PROPIONATE [Suspect]
     Active Substance: FLUTICASONE PROPIONATE
     Indication: Multiple allergies
     Dosage: 50 MCG PER NOSTRIL, QD
     Route: 045
     Dates: start: 202405
  2. FLUTICASONE PROPIONATE [Suspect]
     Active Substance: FLUTICASONE PROPIONATE
     Indication: Respiratory disorder

REACTIONS (3)
  - Skin warm [Unknown]
  - Rash [Unknown]
  - Product use in unapproved indication [Unknown]

NARRATIVE: CASE EVENT DATE: 20240602
